FAERS Safety Report 14480232 (Version 2)
Quarter: 2021Q2

REPORT INFORMATION
  Report Type: Report from Study
  Country: CO (occurrence: CO)
  Receive Date: 20180202
  Receipt Date: 20210513
  Transmission Date: 20210716
  Serious: Yes (Hospitalization, Other)
  Sender: FDA-Public Use
  Company Number: CO-SHIRE-CO201802039

PATIENT
  Age: 14 Year
  Sex: Male
  Weight: 48 kg

DRUGS (4)
  1. ICATIBANT [Suspect]
     Active Substance: ICATIBANT ACETATE
     Indication: HEREDITARY ANGIOEDEMA
     Dosage: 30 MILLIGRAM PER 3 MILLILITRE, Q6HR UP TO A MAXIMUM OF 3 DOSES WITHIN 24 HOURS
     Route: 058
  2. ICATIBANT [Suspect]
     Active Substance: ICATIBANT ACETATE
     Indication: HEREDITARY ANGIOEDEMA
     Dosage: 30 MILLIGRAM PER 3 MILLILITRE, Q6HR UP TO A MAXIMUM OF 3 DOSES WITHIN 24 HOURS
     Route: 058
  3. BECLOMETHASONE                     /00212601/ [Concomitant]
     Active Substance: BECLOMETHASONE
     Indication: PRODUCT USED FOR UNKNOWN INDICATION
  4. KETOTIFEN [Concomitant]
     Active Substance: KETOTIFEN
     Indication: PRODUCT USED FOR UNKNOWN INDICATION

REACTIONS (4)
  - Rash macular [Recovering/Resolving]
  - Weight increased [Unknown]
  - Lipodystrophy acquired [Recovered/Resolved]
  - Injection site pain [Recovered/Resolved]

NARRATIVE: CASE EVENT DATE: 20180117
